FAERS Safety Report 17361671 (Version 2)
Quarter: 2020Q1

REPORT INFORMATION
  Report Type: Spontaneous
  Country: GR (occurrence: GR)
  Receive Date: 20200203
  Receipt Date: 20200218
  Transmission Date: 20200409
  Serious: Yes (Death)
  Sender: FDA-Public Use
  Company Number: GR-JNJFOC-20200149001

PATIENT
  Age: 81 Year
  Sex: Male

DRUGS (1)
  1. ZYTIGA [Suspect]
     Active Substance: ABIRATERONE ACETATE
     Indication: PROSTATE CANCER
     Route: 065

REACTIONS (2)
  - Cardio-respiratory arrest [Fatal]
  - Pyrexia [Unknown]

NARRATIVE: CASE EVENT DATE: 20190629
